FAERS Safety Report 14822526 (Version 3)
Quarter: 2018Q2

REPORT INFORMATION
  Report Type: Report from Study
  Country: US (occurrence: US)
  Receive Date: 20180427
  Receipt Date: 20180614
  Transmission Date: 20180711
  Serious: Yes (Other)
  Sender: FDA-Public Use
  Company Number: US-BAYER-2018-075410

PATIENT
  Age: 61 Year
  Sex: Male

DRUGS (2)
  1. STIVARGA [Suspect]
     Active Substance: REGORAFENIB
     Indication: RECTAL CANCER
     Dosage: 120 MG DAILY
     Route: 048
     Dates: start: 20180403, end: 20180424
  2. STIVARGA [Suspect]
     Active Substance: REGORAFENIB
     Indication: RECTAL CANCER
     Dosage: UNK
     Dates: start: 2018, end: 20180528

REACTIONS (14)
  - Muscle spasms [Recovering/Resolving]
  - Urine abnormality [Not Recovered/Not Resolved]
  - Pyrexia [Recovered/Resolved]
  - Chest discomfort [None]
  - Dehydration [Recovered/Resolved]
  - Dysphonia [None]
  - Dehydration [Recovered/Resolved]
  - Pain in extremity [Recovering/Resolving]
  - Off label use [None]
  - Urinary tract infection [Not Recovered/Not Resolved]
  - Chest pain [Not Recovered/Not Resolved]
  - Blood magnesium decreased [None]
  - Blister [None]
  - Pyrexia [Recovered/Resolved]

NARRATIVE: CASE EVENT DATE: 201804
